FAERS Safety Report 21879213 (Version 1)
Quarter: 2023Q1

REPORT INFORMATION
  Report Type: Spontaneous
  Country: US (occurrence: None)
  Receive Date: 20230117
  Receipt Date: 20230117
  Transmission Date: 20230417
  Serious: Yes (Hospitalization)
  Sender: FDA-Public Use
  Company Number: None

PATIENT
  Age: 67 Year
  Sex: Male
  Weight: 122 kg

DRUGS (1)
  1. EMPAGLIFLOZIN [Suspect]
     Active Substance: EMPAGLIFLOZIN
     Indication: Diabetes mellitus
     Dosage: FREQUENCY : DAILY;?
     Route: 048
     Dates: start: 20190109, end: 20220506

REACTIONS (5)
  - Euglycaemic diabetic ketoacidosis [None]
  - Urinary tract infection [None]
  - Metabolic acidosis [None]
  - Blood ketone body increased [None]
  - Gastroenteritis [None]

NARRATIVE: CASE EVENT DATE: 20220504
